FAERS Safety Report 7290791-7 (Version None)
Quarter: 2011Q1

REPORT INFORMATION
  Report Type: 
  Country: None (occurrence: None)
  Receive Date: 20110214
  Receipt Date: 20110203
  Transmission Date: 20110831
  Serious: Yes (Hospitalization)
  Sender: FDA-Public Use
  Company Number: FR-MILLENNIUM PHARMACEUTICALS, INC.-2011-00534

PATIENT

DRUGS (32)
  1. MELPHALAN [Suspect]
     Indication: MULTIPLE MYELOMA
     Dosage: 14 MG, UNK
     Route: 048
     Dates: start: 20100329, end: 20100817
  2. PREDNISONE [Suspect]
     Indication: MULTIPLE MYELOMA
     Dosage: 400 MG, UNK
     Route: 048
     Dates: start: 20100329, end: 20100817
  3. INSULIN [Concomitant]
     Indication: DIABETES MELLITUS
     Dosage: UNK
     Dates: start: 20100921, end: 20101006
  4. SKENAN [Concomitant]
     Dosage: 50 MG, UNK
     Dates: start: 20100924, end: 20100925
  5. NEXIUM [Concomitant]
     Dosage: 40 MG, UNK
     Dates: start: 20100928, end: 20101006
  6. REVLIMID [Concomitant]
     Dosage: UNK
     Dates: start: 20101006
  7. ASPIRIN [Concomitant]
     Indication: PROPHYLAXIS
     Dosage: 100 MG, UNK
  8. CONTRAMAL [Concomitant]
     Indication: PAIN
     Dosage: 50 MG, UNK
     Dates: start: 20100916, end: 20100916
  9. SKENAN [Concomitant]
     Indication: PAIN
     Dosage: 30 MG, UNK
     Dates: start: 20100923, end: 20100924
  10. AUGMENTIN '125' [Concomitant]
     Indication: INFECTION
     Dosage: 1 G, UNK
     Dates: start: 20200925, end: 20100926
  11. ASPEGIC 325 [Concomitant]
     Indication: THROMBOSIS
     Dosage: 75 MG, UNK
     Dates: start: 20100928
  12. CALCIPARINE [Concomitant]
     Indication: THROMBOSIS
     Dosage: UNK
     Dates: start: 20100928, end: 20101006
  13. SOLU-MEDROL [Concomitant]
     Dosage: 40 MG, UNK
     Dates: start: 20100916, end: 20101006
  14. VELCADE [Suspect]
     Dosage: 2 MG, UNK
     Route: 042
     Dates: start: 20100810, end: 20100817
  15. METFORMIN HYDROCHLORIDE [Concomitant]
     Indication: DIABETES MELLITUS
  16. FORLAX [Concomitant]
     Indication: CONSTIPATION
     Dosage: UNK
     Dates: start: 20100918
  17. GRANOCYTE                          /01003403/ [Concomitant]
     Indication: PROPHYLAXIS
     Dosage: UNK
     Dates: start: 20100917, end: 20101004
  18. TOPALGIC                           /00599202/ [Concomitant]
     Dosage: 100 MG, UNK
     Dates: start: 20100923, end: 20100907
  19. LOVENOX [Concomitant]
     Indication: THROMBOSIS
     Dosage: UNK
     Dates: start: 20100924, end: 20100928
  20. MOPRAL                             /00661201/ [Concomitant]
     Dosage: UNK
     Dates: start: 20101009, end: 20101010
  21. TRIFLUCAN [Concomitant]
     Indication: PROPHYLAXIS
     Dosage: UNK
     Dates: start: 20100916
  22. LYRICA [Concomitant]
     Indication: PAIN
     Dosage: 75 MG, UNK
     Dates: start: 20100920
  23. PYOSTACINE [Concomitant]
     Indication: INFECTION
     Dosage: 1 G, UNK
     Dates: start: 20100925, end: 20100928
  24. SKENAN [Concomitant]
     Dosage: 70 MG, UNK
     Dates: start: 20100925, end: 20101007
  25. REVLIMID [Concomitant]
     Indication: MULTIPLE MYELOMA
     Dosage: UNK
     Dates: start: 20100916, end: 20100922
  26. ORBENINE [Concomitant]
     Indication: INFECTION PROPHYLAXIS
     Dosage: 1 G, UNK
     Dates: start: 20100928, end: 20101006
  27. VELCADE [Suspect]
     Indication: MULTIPLE MYELOMA
     Dosage: 2 MG, UNK
     Route: 042
     Dates: start: 20100329, end: 20100517
  28. VELCADE [Suspect]
     Dosage: 1.4 MG, UNK
     Route: 042
     Dates: start: 20100518, end: 20100809
  29. TOPALGIC                           /00599202/ [Concomitant]
     Indication: PAIN
     Dosage: 50 MG, UNK
     Dates: start: 20100916, end: 20100922
  30. CALCIUM [Concomitant]
     Dosage: UNK
     Dates: start: 20101009, end: 20101012
  31. MORPHINE [Concomitant]
     Indication: PAIN
     Dosage: 100 MG, UNK
     Dates: start: 20100916, end: 20101007
  32. PRIMPERAN                          /00041901/ [Concomitant]
     Indication: NAUSEA
     Dosage: UNK
     Dates: start: 20100916

REACTIONS (2)
  - GENERAL PHYSICAL HEALTH DETERIORATION [None]
  - PYREXIA [None]
